FAERS Safety Report 14223103 (Version 5)
Quarter: 2018Q3

REPORT INFORMATION
  Report Type: Report from Study
  Country: None (occurrence: US)
  Receive Date: 20171125
  Receipt Date: 20180703
  Transmission Date: 20181010
  Serious: Yes (Other)
  Sender: FDA-Public Use
  Company Number: US-ABBVIE-17K-163-2071125-00

PATIENT
  Age: 65 Year
  Sex: Female

DRUGS (2)
  1. HUMIRA [Suspect]
     Active Substance: ADALIMUMAB
     Indication: ANKYLOSING SPONDYLITIS
     Route: 058
     Dates: start: 2017, end: 2017
  2. HUMIRA [Suspect]
     Active Substance: ADALIMUMAB
     Route: 058
     Dates: start: 201709

REACTIONS (24)
  - Oropharyngeal pain [Unknown]
  - Headache [Unknown]
  - Pain [Not Recovered/Not Resolved]
  - Retinal tear [Unknown]
  - Pain in extremity [Unknown]
  - Injection site discolouration [Not Recovered/Not Resolved]
  - Haemorrhage [Recovered/Resolved]
  - Cough [Unknown]
  - Visual impairment [Recovering/Resolving]
  - Musculoskeletal stiffness [Unknown]
  - Injection site erythema [Recovered/Resolved]
  - Injection site haemorrhage [Recovered/Resolved with Sequelae]
  - Pain [Unknown]
  - Ankylosing spondylitis [Unknown]
  - Neck pain [Unknown]
  - Abdominal pain [Unknown]
  - Mydriasis [Recovered/Resolved]
  - Weight increased [Unknown]
  - Blindness unilateral [Unknown]
  - Vitrectomy [Not Recovered/Not Resolved]
  - Eye inflammation [Unknown]
  - Back pain [Unknown]
  - Malaise [Recovered/Resolved]
  - Wrong technique in product usage process [Unknown]

NARRATIVE: CASE EVENT DATE: 201712
